FAERS Safety Report 4733499-1 (Version None)
Quarter: 2005Q3

REPORT INFORMATION
  Report Type: 
  Country: None (occurrence: None)
  Receive Date: 20050725
  Receipt Date: 20040622
  Transmission Date: 20060218
  Serious: Yes (Death)
  Sender: FDA-Public Use
  Company Number: USA-2003-0011149

PATIENT
  Age: 16 Year
  Sex: Male
  Weight: 60.8 kg

DRUGS (8)
  1. MORPHINE SULFATE [Suspect]
  2. HYDROCODONE (HYDROCODONE) [Suspect]
  3. XANAX [Suspect]
  4. ATROPINE [Suspect]
  5. IBUPROFEN [Suspect]
  6. OPIOIDS [Suspect]
  7. CANNABIS (CANNABIS) [Suspect]
  8. NICOTINE [Suspect]

REACTIONS (2)
  - ACCIDENTAL OVERDOSE [None]
  - MULTIPLE DRUG OVERDOSE [None]
